FAERS Safety Report 21369087 (Version 2)
Quarter: 2022Q4

REPORT INFORMATION
  Report Type: Report from Study
  Country: US (occurrence: US)
  Receive Date: 20220923
  Receipt Date: 20221109
  Transmission Date: 20230113
  Serious: Yes (Death, Other)
  Sender: FDA-Public Use
  Company Number: US-BRISTOL-MYERS SQUIBB COMPANY-2022-111002

PATIENT
  Age: 64 Year
  Sex: Male

DRUGS (6)
  1. POMALYST [Suspect]
     Active Substance: POMALIDOMIDE
     Indication: Plasma cell myeloma
     Dosage: FREQ: DAILY FOR 21 DAYS AND 7 DAYS OFF
     Route: 048
     Dates: start: 20201026
  2. POMALYST [Suspect]
     Active Substance: POMALIDOMIDE
     Dosage: QDX21 DAYS ,OFF FOR 7 DAYS
     Route: 048
     Dates: start: 20211217
  3. POMALYST [Suspect]
     Active Substance: POMALIDOMIDE
     Dosage: 21 (UNITS NOT SPECIFIED).
     Route: 065
     Dates: start: 20220127
  4. ACYCLOVIR [Concomitant]
     Active Substance: ACYCLOVIR
     Indication: Product used for unknown indication
  5. ASPIRIN AKUT [Concomitant]
     Indication: Product used for unknown indication
  6. MONTELUKAST SODIUM [Concomitant]
     Active Substance: MONTELUKAST SODIUM
     Indication: Product used for unknown indication

REACTIONS (1)
  - Death [Fatal]

NARRATIVE: CASE EVENT DATE: 20220912
